FAERS Safety Report 8159004-8 (Version None)
Quarter: 2012Q1

REPORT INFORMATION
  Report Type: 
  Country: None (occurrence: None)
  Receive Date: 20120217
  Receipt Date: 20120209
  Transmission Date: 20120608
  Serious: Yes (Hospitalization, Other)
  Sender: FDA-Public Use
  Company Number: AUR-APL-2011-05349

PATIENT
  Age: 26 Year
  Sex: Female

DRUGS (3)
  1. GABAPENTIN [Suspect]
     Dosage: 1800 MG (600 MG, 3 IN 1 D)
     Dates: start: 20090101, end: 20110401
  2. FOLIC ACID [Concomitant]
  3. AMITRIPTYLINE HCL [Suspect]
     Dosage: (125 MG), ORAL
     Route: 048

REACTIONS (3)
  - WITHDRAWAL SYNDROME [None]
  - PREGNANCY [None]
  - MATERNAL EXPOSURE DURING PREGNANCY [None]
